FAERS Safety Report 12172826 (Version 1)
Quarter: 2016Q1

REPORT INFORMATION
  Report Type: Spontaneous
  Country: US (occurrence: US)
  Receive Date: 20160311
  Receipt Date: 20160311
  Transmission Date: 20160526
  Serious: Yes (Hospitalization)
  Sender: FDA-Public Use
  Company Number: US-PFIZER INC-2016086048

PATIENT
  Age: 76 Year
  Sex: Female
  Weight: 76 kg

DRUGS (26)
  1. CITALOPRAM HYDROBROMIDE. [Concomitant]
     Active Substance: CITALOPRAM HYDROBROMIDE
     Dosage: 40 MG, DAILY
     Route: 048
     Dates: start: 20140122
  2. DULOXETINE HCL [Concomitant]
     Active Substance: DULOXETINE HYDROCHLORIDE
     Dosage: 60 MG, DAILY
     Dates: start: 20140122
  3. PROMETHAZINE HCL [Concomitant]
     Active Substance: PROMETHAZINE HYDROCHLORIDE
     Indication: NAUSEA
     Dosage: 25 MG, AS NEEDED (25 MG ORAL TABLET ? - 1 TAB Q6H PRN)
     Route: 048
     Dates: start: 20140217
  4. CYMBALTA [Concomitant]
     Active Substance: DULOXETINE HYDROCHLORIDE
     Dosage: 20 MG, UNK
     Dates: start: 20140122
  5. CYMBALTA [Concomitant]
     Active Substance: DULOXETINE HYDROCHLORIDE
     Dosage: 60 MG, DAILY
     Dates: start: 20140122
  6. LACTASE ENZYME [Concomitant]
     Dosage: UNK (3000 UNITS ORAL TABLET TAKE 1 TO 3 TABLET WITH FIRST BITE OF DAIRY FOOD)
     Route: 048
     Dates: start: 20150121
  7. NEURONTIN [Concomitant]
     Active Substance: GABAPENTIN
     Dosage: 300 MG, 1X/DAY ( AT BED TIME)
     Route: 048
     Dates: start: 20150121
  8. NITROSTAT [Concomitant]
     Active Substance: NITROGLYCERIN
     Indication: CHEST PAIN
     Dosage: 0.4 MG, AS NEEDED (PLACE 1 TABLET UNDER THE TONGUE EVERY 5 MINUTES FOR UP TO 3 DOSES AS NEEDED)
     Route: 060
     Dates: start: 20150121
  9. PLAVIX [Concomitant]
     Active Substance: CLOPIDOGREL BISULFATE
     Dosage: 75 MG, DAILY
     Route: 048
     Dates: start: 20150121
  10. MECLIZINE HCL [Concomitant]
     Dosage: 25 MG, AS NEEDED (TAKE 1 TABLET EVERY 6 HOURS PRN)
     Route: 048
     Dates: start: 20150121
  11. NORVASC [Concomitant]
     Active Substance: AMLODIPINE BESYLATE
     Dosage: 5 MG, DAILY
     Route: 048
     Dates: start: 20150121
  12. FUROSEMIDE. [Concomitant]
     Active Substance: FUROSEMIDE
     Dosage: 40 MG, DAILY
     Route: 048
     Dates: start: 20150121
  13. PROAIR HFA [Concomitant]
     Active Substance: ALBUTEROL SULFATE
     Dosage: 2 DF, DAILY (INHALE 2 PUFFS 4 TIMES DAILY)
     Dates: start: 20150121
  14. RESTORIL [Concomitant]
     Active Substance: TEMAZEPAM
     Dosage: 15 MG, 1X/DAY (AT BEDTIME)
     Route: 048
     Dates: start: 20140122
  15. BOSULIF [Suspect]
     Active Substance: BOSUTINIB MONOHYDRATE
     Indication: CHRONIC MYELOID LEUKAEMIA
     Dosage: 300 MG, DAILY
  16. BOSULIF [Suspect]
     Active Substance: BOSUTINIB MONOHYDRATE
     Dosage: 200 MG, UNK (ONCE)
     Route: 048
     Dates: start: 20150121
  17. LANTUS SOLOSTAR [Concomitant]
     Active Substance: INSULIN GLARGINE
     Dosage: UNK, 2X/DAY (100 UNIT/ML SUBCUTANEOUS SOLUTION PEN-INJECTOR INJECT 22 UNITS EACH MORNING/22 UNIT)
     Route: 058
     Dates: start: 20140818
  18. LOSARTAN POTASSIUM. [Concomitant]
     Active Substance: LOSARTAN POTASSIUM
     Dosage: 100 MG, DAILY
     Route: 048
     Dates: start: 20150121
  19. PRILOSEC [Concomitant]
     Active Substance: OMEPRAZOLE MAGNESIUM
     Dosage: 20 MG, DAILY
     Route: 048
     Dates: start: 20150121
  20. AMLODIPINE BESYLATE. [Concomitant]
     Active Substance: AMLODIPINE BESYLATE
     Dosage: UNK UNK, DAILY (5MG ORAL TABLET TAKE 1 ? TABLETS DAILY)
     Route: 048
     Dates: start: 20150421
  21. ATORVASTATIN CALCIUM. [Concomitant]
     Active Substance: ATORVASTATIN CALCIUM
     Dosage: 80 MG, 1X/DAY
     Route: 048
     Dates: start: 20150121
  22. ATROVENT [Concomitant]
     Active Substance: IPRATROPIUM BROMIDE
     Dosage: UNK, DAILY (USE 2 SPRAYS IN EACH NOSTRIL 2 TO 3 TIMES DAILY)
     Dates: start: 20150121
  23. IRON [Concomitant]
     Active Substance: IRON
     Dosage: 325 MG, DAILY (IRON 325 (65 FE) MG ORAL TABLET TAKE 1 TABLET DAILY WITH FOOD)
     Route: 048
     Dates: start: 20150121
  24. METOPROLOL TARTRATE. [Concomitant]
     Active Substance: METOPROLOL TARTRATE
     Dosage: 25 MG, 2X/DAY
     Route: 048
     Dates: start: 20140318
  25. ASPIRIN. [Concomitant]
     Active Substance: ASPIRIN
     Dosage: 81 MG, DAILY
     Route: 048
     Dates: start: 20140122
  26. ONDANSETRON [Concomitant]
     Active Substance: ONDANSETRON
     Indication: NAUSEA
     Dosage: 8 MG, UNK (TAKE 1TABLET EVERY 6-8 HOURS PRN)
     Route: 048
     Dates: start: 20140217

REACTIONS (4)
  - Myocardial infarction [Unknown]
  - Disease progression [Unknown]
  - Weight increased [Unknown]
  - Chronic myeloid leukaemia [Unknown]
